FAERS Safety Report 22059505 (Version 2)
Quarter: 2023Q1

REPORT INFORMATION
  Report Type: Report from Study
  Country: MX (occurrence: MX)
  Receive Date: 20230303
  Receipt Date: 20230310
  Transmission Date: 20230417
  Serious: Yes (Life-Threatening)
  Sender: FDA-Public Use
  Company Number: MX-PFIZER INC-PV202300039900

PATIENT
  Age: 75 Year
  Sex: Male
  Weight: 49 kg

DRUGS (3)
  1. ENZALUTAMIDE [Suspect]
     Active Substance: ENZALUTAMIDE
     Indication: Prostate cancer
     Dosage: UNK UNK, UNKNOWN FREQ.
     Route: 048
     Dates: start: 20230116
  2. TALAZOPARIB [Suspect]
     Active Substance: TALAZOPARIB
     Indication: Prostate cancer
     Dosage: UNK UNK, UNKNOWN FREQ.
     Route: 048
     Dates: start: 20230116
  3. ZALDIAR [Concomitant]
     Active Substance: ACETAMINOPHEN\TRAMADOL HYDROCHLORIDE
     Indication: Bone pain
     Dosage: PARACETAMOL 325 MG AND TRAMADOL 37.5 MG, TWICE DAILY
     Route: 048
     Dates: start: 202209

REACTIONS (1)
  - Platelet count decreased [Recovering/Resolving]

NARRATIVE: CASE EVENT DATE: 20230228
